FAERS Safety Report 23581768 (Version 1)
Quarter: 2024Q1

REPORT INFORMATION
  Report Type: Spontaneous
  Country: US (occurrence: US)
  Receive Date: 20240229
  Receipt Date: 20240229
  Transmission Date: 20240410
  Serious: No
  Sender: FDA-Public Use
  Company Number: US-FreseniusKabi-FK202402645

PATIENT
  Sex: Male

DRUGS (1)
  1. SODIUM CHLORIDE [Suspect]
     Active Substance: SODIUM CHLORIDE
     Indication: Irrigation therapy
     Dosage: FORM OF ADMIN: SOLUTION FOR INJECTION?DOSAGE(DOSE AND FREQUENCY)- ASKED BUT UNKNOWN, EVERY TUESDAY,
     Route: 042

REACTIONS (1)
  - Dysgeusia [Recovered/Resolved]
